FAERS Safety Report 8256709-5 (Version None)
Quarter: 2012Q2

REPORT INFORMATION
  Report Type: 
  Country: None (occurrence: None)
  Receive Date: 20120403
  Receipt Date: 20120323
  Transmission Date: 20120825
  Serious: No
  Sender: FDA-Public Use
  Company Number: US-PFIZER INC-2012033607

PATIENT
  Age: 63 Year
  Sex: Male

DRUGS (5)
  1. COLLAGENASE CLOSTRIDIUM HISTOLYTICUM [Suspect]
     Indication: DUPUYTREN'S CONTRACTURE
     Dosage: 0.25 MG/ML, 1X/DAY
     Route: 026
     Dates: start: 20120130, end: 20120130
  2. LIDOCAINE HYDROCHLORIDE [Suspect]
     Dosage: 2%/3CC
     Dates: start: 20120130, end: 20120130
  3. ATENOLOL [Concomitant]
  4. OMEPRAZOLE [Concomitant]
  5. AMLODIPINE [Concomitant]

REACTIONS (5)
  - BLOOD BLISTER [None]
  - INJECTION SITE PAIN [None]
  - LACERATION [None]
  - CONTUSION [None]
  - SWELLING [None]
